FAERS Safety Report 5717661-7 (Version None)
Quarter: 2008Q2

REPORT INFORMATION
  Report Type: 
  Country: None (occurrence: None)
  Receive Date: 20080425
  Receipt Date: 20080417
  Transmission Date: 20081010
  Serious: Yes (Other)
  Sender: FDA-Public Use
  Company Number: US-ROCHE-538555

PATIENT
  Sex: Female

DRUGS (2)
  1. PEG-INTERFERON A-2A (RO 25-8310) [Suspect]
     Dosage: THE PATIENT WAS TAKING PEGASYS PRE-FILLED SYRINGE
     Route: 065
     Dates: start: 20070907
  2. RIBAVIRIN [Suspect]
     Route: 065
     Dates: start: 20070907

REACTIONS (5)
  - ASTHENIA [None]
  - BLOOD SODIUM DECREASED [None]
  - PULMONARY CONGESTION [None]
  - RED BLOOD CELL COUNT DECREASED [None]
  - WHITE BLOOD CELL COUNT DECREASED [None]
